FAERS Safety Report 8545166 (Version 5)
Quarter: 2013Q2

REPORT INFORMATION
  Report Type: Spontaneous
  Country: US (occurrence: US)
  Receive Date: 20120503
  Receipt Date: 20130605
  Transmission Date: 20140414
  Serious: Yes (Other)
  Sender: FDA-Public Use
  Company Number: US-PFIZER INC-2012105132

PATIENT
  Sex: Female

DRUGS (1)
  1. XALATAN [Suspect]
     Dosage: UNK

REACTIONS (7)
  - Eye disorder [Unknown]
  - Arthritis [Unknown]
  - Gait disturbance [Unknown]
  - Cardiac disorder [Unknown]
  - Cardiac failure [Unknown]
  - Pain [Unknown]
  - Swelling [Unknown]
